FAERS Safety Report 6600922-7 (Version None)
Quarter: 2010Q1

REPORT INFORMATION
  Report Type: 
  Country: None (occurrence: None)
  Receive Date: 20100224
  Receipt Date: 20100224
  Transmission Date: 20100710
  Serious: No
  Sender: FDA-Public Use
  Company Number: None

PATIENT
  Sex: Male
  Weight: 79.3795 kg

DRUGS (2)
  1. CADUET [Suspect]
     Indication: BLOOD CHOLESTEROL
     Dosage: 10/40 TWO DOSAGES
  2. CADUET [Suspect]
     Indication: HYPERTENSION
     Dosage: 10/40 TWO DOSAGES

REACTIONS (5)
  - BLISTER [None]
  - MYALGIA [None]
  - PURULENT DISCHARGE [None]
  - RASH [None]
  - SKIN DISCOLOURATION [None]
